FAERS Safety Report 22382464 (Version 1)
Quarter: 2023Q2

REPORT INFORMATION
  Report Type: Spontaneous
  Country: US (occurrence: US)
  Receive Date: 20230530
  Receipt Date: 20230530
  Transmission Date: 20230722
  Serious: Yes (Other)
  Sender: FDA-Public Use
  Company Number: US-BRISTOL-MYERS SQUIBB COMPANY-2023-075118

PATIENT
  Age: 77 Year
  Sex: Male
  Weight: 91 kg

DRUGS (12)
  1. POMALYST [Suspect]
     Active Substance: POMALIDOMIDE
     Indication: Plasma cell myeloma
     Dosage: DOSE : 2 MG;     FREQ : ONE DAILY FOR 21 DAYS AND 7 DAYS OFF.
     Route: 048
     Dates: start: 20230126
  2. ASPIRIN [Concomitant]
     Active Substance: ASPIRIN
     Dosage: 81MG
  3. CIALIS [Concomitant]
     Active Substance: TADALAFIL
     Dosage: 5 MG TABLETS
  4. DEXAMETHASONE [Concomitant]
     Active Substance: DEXAMETHASONE
     Dosage: 4 MG TABLETS
  5. LISINOPRIL [Concomitant]
     Active Substance: LISINOPRIL
     Dosage: 10 MG TABLETS
  6. VITAMINS NOS [Concomitant]
     Active Substance: VITAMINS
     Dosage: TABLETS
  7. ROSUVASTATIN [Concomitant]
     Active Substance: ROSUVASTATIN
     Dosage: 40 MG TABLETS
  8. VALACYCLOVIR [Concomitant]
     Active Substance: VALACYCLOVIR HYDROCHLORIDE
     Dosage: 50 MG TABLETS
  9. ERGOCALCIFEROL [Concomitant]
     Active Substance: ERGOCALCIFEROL
     Dosage: 1000 UNITS CAPSULE
  10. DOXYCYCLINE [Concomitant]
     Active Substance: DOXYCYCLINE
     Dosage: 100MG CAPSULE
  11. CALCIUM [Concomitant]
     Active Substance: CALCIUM
     Dosage: 600 MG TABLETS
  12. BENZONATATE [Concomitant]
     Active Substance: BENZONATATE
     Dosage: 100MG CAPSULE

REACTIONS (1)
  - Plasma cell myeloma [Unknown]
